FAERS Safety Report 19116963 (Version 2)
Quarter: 2021Q2

REPORT INFORMATION
  Report Type: Report from Study
  Country: US (occurrence: US)
  Receive Date: 20210409
  Receipt Date: 20210604
  Transmission Date: 20210717
  Serious: Yes (Hospitalization)
  Sender: FDA-Public Use
  Company Number: US-CELGENEUS-USA-20210401484

PATIENT
  Age: 81 Year
  Sex: Female
  Weight: 54 kg

DRUGS (30)
  1. VALACYCLOVIR (VALTREX) [Concomitant]
     Indication: PROPHYLAXIS
     Dosage: 500 MG X 2 X 1 DAYS
     Route: 048
     Dates: start: 20210303, end: 20210426
  2. VORICONAZOLE (VFEND) [Concomitant]
     Indication: PROPHYLAXIS
     Dosage: 200 MG X 1 X 12 HOURS
     Route: 048
     Dates: start: 20210501
  3. AZACITIDINE. [Suspect]
     Active Substance: AZACITIDINE
     Indication: ACUTE MYELOID LEUKAEMIA
     Dosage: 111 MG X 1 X 1 DAYS
     Route: 058
     Dates: start: 20210312, end: 20210312
  4. ROCALTROL [Concomitant]
     Active Substance: CALCITRIOL
     Indication: MINERAL SUPPLEMENTATION
     Dosage: 0.25 MG X 1 X 1 DAYS
     Route: 048
     Dates: start: 20210312, end: 20210425
  5. CETIRIZINE (ZYRTEX) [Concomitant]
     Indication: PROPHYLAXIS
     Dosage: 10 MG X PRN
     Route: 048
     Dates: start: 20210312, end: 20210422
  6. DECADRON [Concomitant]
     Active Substance: DEXAMETHASONE
     Indication: STEROID THERAPY
     Dosage: 10 MG X 1 X 1 DAYS
     Route: 048
     Dates: start: 20210315, end: 20210422
  7. OXYBUTYNIN (DITROPAN) [Concomitant]
     Dosage: 5 MG X 2 X 1 DAYS
     Route: 048
     Dates: start: 20210308, end: 20210419
  8. OXYCODONE?ACETAMINOPHEN(PERCOCET) [Concomitant]
     Indication: PROPHYLAXIS
     Dosage: 5?325 MG X 1 X 4 HOURS
     Route: 048
     Dates: start: 20210226, end: 20210227
  9. PHYTONADION (VITAMIN K1) (MEPHYTON) [Concomitant]
     Indication: ANTICOAGULANT THERAPY
     Dosage: 10 MG X 1 X 1 DAYS
     Route: 048
     Dates: start: 20210318, end: 20210320
  10. HYDROXYUREA (HYDREA) [Concomitant]
     Dosage: 1000 MG X 3 X 1 DAYS
     Route: 048
     Dates: start: 20210310, end: 20210311
  11. LEVAQUIN [Concomitant]
     Active Substance: LEVOFLOXACIN
     Dosage: 500 MG X 1 X 1 DAYS
     Route: 042
     Dates: start: 20210320, end: 20210321
  12. LIDOCAINE (PF) (XYLOCAINE) [Concomitant]
     Indication: PROPHYLAXIS
     Dosage: 10 ML X ONCE
     Route: 058
     Dates: start: 20210304, end: 20210304
  13. OXYBUTYNIN (DITROPAN) [Concomitant]
     Dosage: 5 MG X 3 X 1 DAYS
     Route: 048
     Dates: start: 20210310, end: 20210324
  14. CALCIUM CARBONATE (OSCAL) [Concomitant]
     Indication: MINERAL SUPPLEMENTATION
     Dosage: 1250 MG X 3 X 1 DAYS
     Route: 048
     Dates: start: 20210312
  15. HYDROXYUREA (HYDREA) [Concomitant]
     Indication: ACUTE MYELOID LEUKAEMIA
     Dosage: 1000 MG X 2 X 1 DAYS
     Route: 048
     Dates: start: 20210309, end: 20210310
  16. LIDOCAINE?PRILOCAINE (EMLA) 2.5% CREAM [Concomitant]
     Indication: INJECTION SITE PAIN
     Dosage: 25 G X 1 X 1 DAYS
     Route: 061
     Dates: start: 20210104
  17. MEPERIDINE (DEMEROL) [Concomitant]
     Indication: PROPHYLAXIS
     Dosage: 12.5 MG X ONCE
     Route: 042
     Dates: start: 20210312, end: 20210312
  18. ACYCLOVIR (ZOVIRAX) [Concomitant]
     Dosage: 350 MG X 1 X 12 HOURS
     Route: 042
     Dates: start: 20210321, end: 20210321
  19. ZYLOPRIM [Concomitant]
     Active Substance: ALLOPURINOL
     Indication: PROPHYLAXIS
     Dosage: 300 MG X 1 X 1 DAYS
     Route: 048
     Dates: start: 20210310, end: 20210324
  20. CASPOFUNGIN [Concomitant]
     Active Substance: CASPOFUNGIN
     Indication: PROPHYLAXIS
     Dosage: 70 MG X ONCE
     Route: 042
     Dates: start: 20210303, end: 20210304
  21. OXYBUTYNIN (DITROPAN) [Concomitant]
     Indication: POLLAKIURIA
     Dosage: 2.5 MG X 2 X 1 DAYS
     Route: 048
     Dates: start: 20210304, end: 20210308
  22. POTASSIUM/SODIUM PHOSPHATES (PHOS?NAK) [Concomitant]
     Indication: PROPHYLAXIS
     Dosage: 250 MG X ONCE
     Route: 048
     Dates: start: 20210304, end: 20210304
  23. ACYCLOVIR (ZOVIRAX) [Concomitant]
     Indication: PROPHYLAXIS
     Dosage: 180 MG X 1 X 12 HOURS
     Route: 042
     Dates: start: 20210321, end: 20210323
  24. CHOLECALCIFEROL (VITAMIN D) [Concomitant]
     Indication: PROPHYLAXIS
     Dosage: 1000 IU X 1 X 1 DAYS
     Route: 048
     Dates: start: 20210312
  25. POTASSIUM PHOSPHATE [Concomitant]
     Active Substance: POTASSIUM PHOSPHATE
     Indication: PROPHYLAXIS
     Dosage: 30 MMOL X PRN
     Route: 042
     Dates: start: 20210322, end: 20210425
  26. VENETOCLAX. [Suspect]
     Active Substance: VENETOCLAX
     Indication: ACUTE MYELOID LEUKAEMIA
     Dosage: 100 MG X 1 X 1 DAYS
     Route: 048
     Dates: start: 20210312, end: 20210312
  27. ALBUTEROL (PROVENTIL HFA; VENTOLIN HFA) [Concomitant]
     Indication: DYSPNOEA
     Dosage: 2?4 PUFF X PRN
     Route: 055
     Dates: start: 20210312, end: 20210426
  28. LEVAQUIN [Concomitant]
     Active Substance: LEVOFLOXACIN
     Indication: PROPHYLAXIS
     Dosage: 500 MG X 1 X 1 DAYS
     Route: 048
     Dates: start: 20210308
  29. CC?90009 [Suspect]
     Active Substance: INVESTIGATIONAL PRODUCT
     Indication: ACUTE MYELOID LEUKAEMIA
     Dosage: 3 MG X 1 X 1 DAYS
     Route: 042
     Dates: start: 20210315, end: 20210315
  30. CASPOFUNGIN [Concomitant]
     Active Substance: CASPOFUNGIN
     Dosage: 50 MG X 1 X 1 DAYS
     Route: 042
     Dates: start: 20210304, end: 20210426

REACTIONS (1)
  - Sepsis [Recovered/Resolved]

NARRATIVE: CASE EVENT DATE: 20210322
